FAERS Safety Report 15535596 (Version 1)
Quarter: 2018Q4

REPORT INFORMATION
  Report Type: Spontaneous
  Country: US (occurrence: US)
  Receive Date: 20181022
  Receipt Date: 20181022
  Transmission Date: 20190205
  Serious: No
  Sender: FDA-Public Use
  Company Number: US-PFIZER INC-2018105260

PATIENT
  Age: 10 Year
  Sex: Male

DRUGS (2)
  1. GENOTROPIN [Suspect]
     Active Substance: SOMATROPIN
     Indication: DYSPLASIA
     Dosage: 1.1 MG, DAILY
     Dates: start: 20131105
  2. GENOTROPIN [Suspect]
     Active Substance: SOMATROPIN
     Indication: ACUTE MYELOID LEUKAEMIA
     Dosage: 1 MG, DAILY
     Dates: start: 201512

REACTIONS (5)
  - Product prescribing error [Unknown]
  - Bone density increased [Unknown]
  - Blood urea increased [Unknown]
  - Product use in unapproved indication [Unknown]
  - Blood urea nitrogen/creatinine ratio increased [Unknown]

NARRATIVE: CASE EVENT DATE: 20181004
